FAERS Safety Report 17804486 (Version 3)
Quarter: 2020Q2

REPORT INFORMATION
  Report Type: Spontaneous
  Country: US (occurrence: US)
  Receive Date: 20200519
  Receipt Date: 20200616
  Transmission Date: 20200714
  Serious: No
  Sender: FDA-Public Use
  Company Number: US-B.I. PHARMACEUTICALS,INC./RIDGEFIELD-2020-US-025061

PATIENT
  Sex: Female

DRUGS (1)
  1. SPIRIVA RESPIMAT [Suspect]
     Active Substance: TIOTROPIUM BROMIDE
     Indication: ASTHMA
     Dosage: 1.25MCG 2 INHALATIONS ONCE DAILY
     Route: 055
     Dates: start: 202003

REACTIONS (9)
  - Drug ineffective [Unknown]
  - Product quality issue [Unknown]
  - Tremor [Unknown]
  - Nausea [Unknown]
  - Rhinitis [Unknown]
  - Glossodynia [Unknown]
  - Blood pressure increased [Unknown]
  - Feeling abnormal [Unknown]
  - Dry mouth [Unknown]

NARRATIVE: CASE EVENT DATE: 20200505
